FAERS Safety Report 9254569 (Version 3)
Quarter: 2013Q3

REPORT INFORMATION
  Report Type: Report from Study
  Country: JP (occurrence: JP)
  Receive Date: 20130425
  Receipt Date: 20130714
  Transmission Date: 20140515
  Serious: Yes (Other)
  Sender: FDA-Public Use
  Company Number: JP-OTSUKA-JP-2013-11049

PATIENT
  Age: 83 Year
  Sex: Female
  Weight: 46 kg

DRUGS (11)
  1. SAMSCA [Suspect]
     Indication: FLUID RETENTION
     Dosage: 7.5 MG MILLIGRAM(S), QAM
     Route: 048
     Dates: start: 20130329, end: 20130330
  2. LASIX [Suspect]
     Indication: CARDIAC FAILURE
     Dosage: 40 MG MILLIGRAM(S), DAILY DOSE
     Route: 048
  3. APORASNON 25MG [Suspect]
     Indication: CARDIAC FAILURE
     Dosage: 50 MG MILLIGRAM(S), DAILY DOSE
     Route: 048
  4. ALDACTONE A [Suspect]
     Route: 048
  5. PARIET [Concomitant]
     Indication: PROPHYLAXIS
     Dosage: 10 MG MILLIGRAM(S), DAILY DOSE
     Route: 048
  6. BIOFERMIN [Concomitant]
     Indication: PROPHYLAXIS
     Dosage: 18 MG MILLIGRAM(S), DAILY DOSE
     Route: 048
  7. MARZULENE [Concomitant]
     Indication: PROPHYLAXIS
     Dosage: 3 G GRAM(S), DAILY DOSE
     Route: 048
  8. WARFARIN K [Concomitant]
     Indication: CARDIAC FAILURE
     Dosage: 2 MG MILLIGRAM(S), DAILY DOSE
     Route: 048
  9. MAINTATE [Concomitant]
     Indication: CARDIAC FAILURE
     Dosage: 5 MG MILLIGRAM(S), DAILY DOSE
     Route: 048
  10. LIPITOR [Concomitant]
     Indication: PROPHYLAXIS
     Dosage: 10 MG MILLIGRAM(S), DAILY DOSE
     Route: 048
  11. CEFAMEZIN [Concomitant]
     Indication: PROPHYLAXIS
     Dosage: 2 G GRAM(S), DAILY DOSE
     Route: 042
     Dates: start: 20130326, end: 20130329

REACTIONS (4)
  - Rash [Recovered/Resolved]
  - Atrial fibrillation [Unknown]
  - Thirst [Recovering/Resolving]
  - Dehydration [Recovered/Resolved]
